FAERS Safety Report 16611836 (Version 1)
Quarter: 2019Q3

REPORT INFORMATION
  Report Type: Spontaneous
  Country: TR (occurrence: TR)
  Receive Date: 20190722
  Receipt Date: 20190722
  Transmission Date: 20191004
  Serious: Yes (Other)
  Sender: FDA-Public Use
  Company Number: TR-HQ SPECIALTY-TR-2019INT000174

PATIENT
  Age: 54 Year
  Sex: Male

DRUGS (2)
  1. ETOPOSIDE. [Suspect]
     Active Substance: ETOPOSIDE
     Indication: SMALL CELL CARCINOMA
     Dosage: 100 MG/M2, DAY 1-3, 3 WEEKLY
  2. CISPLATIN. [Suspect]
     Active Substance: CISPLATIN
     Indication: SMALL CELL CARCINOMA
     Dosage: 75 MG/M2, DAY 1

REACTIONS (1)
  - Retinal artery occlusion [Recovered/Resolved]
